FAERS Safety Report 5464301-0 (Version None)
Quarter: 2007Q3

REPORT INFORMATION
  Report Type: 
  Country: None (occurrence: None)
  Receive Date: 20070921
  Receipt Date: 20070919
  Transmission Date: 20080115
  Serious: Yes (Hospitalization)
  Sender: FDA-Public Use
  Company Number: B0487628A

PATIENT
  Age: 70 Year
  Sex: Female

DRUGS (6)
  1. PAXIL [Suspect]
     Indication: DEPRESSION
     Dosage: 30MG PER DAY
     Route: 048
     Dates: end: 20070709
  2. TOLEDOMIN [Concomitant]
     Route: 048
  3. SYMMETREL [Concomitant]
     Route: 048
  4. LIPITOR [Concomitant]
     Route: 048
  5. THYRADIN [Concomitant]
     Route: 048
  6. SERTRALINE HYDROCHLORIDE [Concomitant]
     Dosage: 50MG PER DAY
     Route: 048

REACTIONS (5)
  - HYPERHIDROSIS [None]
  - MALAISE [None]
  - NEUROLEPTIC MALIGNANT SYNDROME [None]
  - PARKINSON'S DISEASE [None]
  - TREMOR [None]
